FAERS Safety Report 4518479-3 (Version None)
Quarter: 2004Q4

REPORT INFORMATION
  Report Type: 
  Country: None (occurrence: None)
  Receive Date: 20041203
  Receipt Date: 20041124
  Transmission Date: 20050328
  Serious: Yes (Other)
  Sender: FDA-Public Use
  Company Number: JP-MERCK-0411USA04190

PATIENT
  Age: 80 Year
  Sex: Male

DRUGS (4)
  1. PEPCID RPD [Suspect]
     Route: 048
  2. GASMOTIN [Concomitant]
     Route: 065
  3. MUCOSTA [Concomitant]
     Route: 065
  4. CEFACLOR [Concomitant]
     Route: 065

REACTIONS (1)
  - RHABDOMYOLYSIS [None]
